FAERS Safety Report 6124596-7 (Version None)
Quarter: 2009Q1

REPORT INFORMATION
  Report Type: 
  Country: None (occurrence: None)
  Receive Date: 20090319
  Receipt Date: 20090311
  Transmission Date: 20090719
  Serious: Yes (Death)
  Sender: FDA-Public Use
  Company Number: A0764895A

PATIENT
  Age: 65 Year
  Sex: Male

DRUGS (11)
  1. ADVAIR HFA [Suspect]
     Indication: DRUG USE FOR UNKNOWN INDICATION
     Dosage: 1PUFF TWICE PER DAY
     Route: 055
  2. SEREVENT [Suspect]
     Indication: DRUG USE FOR UNKNOWN INDICATION
     Route: 055
  3. ALBUTEROL [Concomitant]
  4. LANOXIN [Concomitant]
  5. XANAX [Concomitant]
  6. LEVAQUIN [Concomitant]
  7. IMDUR [Concomitant]
  8. ASPIRIN [Concomitant]
  9. OXYGEN [Concomitant]
  10. PREDNISONE [Concomitant]
  11. NITROGLYCERIN [Concomitant]

REACTIONS (2)
  - CHRONIC OBSTRUCTIVE PULMONARY DISEASE [None]
  - LUNG NEOPLASM MALIGNANT [None]
